FAERS Safety Report 25370661 (Version 2)
Quarter: 2025Q2

REPORT INFORMATION
  Report Type: Spontaneous
  Country: US (occurrence: US)
  Receive Date: 20250528
  Receipt Date: 20250617
  Transmission Date: 20250717
  Serious: No
  Sender: RADIUS PHARM
  Company Number: US-RADIUS HEALTH INC.-2025US001366

PATIENT
  Sex: Female

DRUGS (1)
  1. TYMLOS [Suspect]
     Active Substance: ABALOPARATIDE
     Indication: Senile osteoporosis
     Dosage: 80 MICROGRAM, QD
     Route: 058
     Dates: start: 2025

REACTIONS (13)
  - Influenza like illness [Unknown]
  - Ear discomfort [Unknown]
  - Abdominal distension [Unknown]
  - Hypotension [Recovering/Resolving]
  - Weight decreased [Recovered/Resolved]
  - Decreased appetite [Unknown]
  - Constipation [Unknown]
  - Nausea [Unknown]
  - Vertigo [Unknown]
  - Lethargy [Unknown]
  - Asthenia [Unknown]
  - Dizziness [Recovering/Resolving]
  - Headache [Unknown]

NARRATIVE: CASE EVENT DATE: 20250101
